FAERS Safety Report 12631780 (Version 2)
Quarter: 2016Q3

REPORT INFORMATION
  Report Type: Spontaneous
  Country: US (occurrence: US)
  Receive Date: 20160808
  Receipt Date: 20160808
  Transmission Date: 20161109
  Serious: No
  Sender: FDA-Public Use
  Company Number: US-BEH-2016061001

PATIENT
  Sex: Male
  Weight: 81 kg

DRUGS (15)
  1. OXYCODONE [Concomitant]
     Active Substance: OXYCODONE
  2. IPRATROPIUM [Concomitant]
     Active Substance: IPRATROPIUM
  3. NASONEX [Concomitant]
     Active Substance: MOMETASONE FUROATE
  4. ASPIRIN. [Concomitant]
     Active Substance: ASPIRIN
  5. VITAMIN D3 [Concomitant]
     Active Substance: CHOLECALCIFEROL
  6. HIZENTRA [Suspect]
     Active Substance: HUMAN IMMUNOGLOBULIN G
     Indication: RHINITIS
     Route: 058
  7. MORPHINE [Concomitant]
     Active Substance: MORPHINE
  8. CYCLOBENZAPRINE [Concomitant]
     Active Substance: CYCLOBENZAPRINE
  9. HIZENTRA [Suspect]
     Active Substance: HUMAN IMMUNOGLOBULIN G
     Indication: IMMUNODEFICIENCY
     Route: 058
  10. PRILOSEC [Concomitant]
     Active Substance: OMEPRAZOLE MAGNESIUM
  11. CALCIUM 500+D [Concomitant]
     Active Substance: CALCIUM\VITAMIN D
  12. XOPENEX [Concomitant]
     Active Substance: LEVALBUTEROL HYDROCHLORIDE
  13. IBUPROFEN. [Concomitant]
     Active Substance: IBUPROFEN
  14. HIZENTRA [Suspect]
     Active Substance: HUMAN IMMUNOGLOBULIN G
     Indication: CHRONIC SINUSITIS
     Route: 058
  15. SYMBICORT [Concomitant]
     Active Substance: BUDESONIDE\FORMOTEROL FUMARATE DIHYDRATE

REACTIONS (2)
  - Upper respiratory tract infection [Unknown]
  - Infusion site extravasation [Unknown]
